FAERS Safety Report 9887589 (Version 2)
Quarter: 2014Q1

REPORT INFORMATION
  Report Type: Spontaneous
  Country: JP (occurrence: JP)
  Receive Date: 20140211
  Receipt Date: 20140221
  Transmission Date: 20141002
  Serious: Yes (Other)
  Sender: FDA-Public Use
  Company Number: JP-ROCHE-1344792

PATIENT
  Age: 5 Year
  Sex: Female
  Weight: 22 kg

DRUGS (2)
  1. TAMIFLU [Suspect]
     Indication: INFLUENZA
     Dosage: DOSAGE IS UNCERTAIN.?DRY SYRUP 3%
     Route: 048
     Dates: start: 20140127, end: 20140130
  2. LIGHTGEN [Suspect]
     Indication: COUGH
     Route: 048
     Dates: start: 20140127, end: 20140130

REACTIONS (1)
  - Abnormal behaviour [Recovered/Resolved]
